FAERS Safety Report 6386587-0 (Version None)
Quarter: 2009Q4

REPORT INFORMATION
  Report Type: 
  Country: None (occurrence: None)
  Receive Date: 20091002
  Receipt Date: 20090416
  Transmission Date: 20100525
  Serious: No
  Sender: FDA-Public Use
  Company Number: US-ASTRAZENECA-2009UW09610

PATIENT
  Sex: Female

DRUGS (1)
  1. ARIMIDEX [Suspect]
     Route: 048

REACTIONS (8)
  - ANXIETY [None]
  - CONSTIPATION [None]
  - DEPRESSION [None]
  - EPISTAXIS [None]
  - GINGIVAL BLEEDING [None]
  - INSOMNIA [None]
  - MOOD SWINGS [None]
  - MOTION SICKNESS [None]
